FAERS Safety Report 12876323 (Version 12)
Quarter: 2019Q2

REPORT INFORMATION
  Report Type: Spontaneous
  Country: JP (occurrence: JP)
  Receive Date: 20161024
  Receipt Date: 20190614
  Transmission Date: 20190711
  Serious: Yes (Hospitalization, Other)
  Sender: FDA-Public Use
  Company Number: JP-FERRINGPH-2016FE05601

PATIENT
  Age: 52 Year
  Sex: Male
  Weight: 70 kg

DRUGS (6)
  1. MINIRINMELT [Suspect]
     Active Substance: DESMOPRESSIN ACETATE
     Dosage: 60 ?G, 2 TIMES DAILYNOON AND BEFORE BED TIME
     Route: 048
     Dates: end: 20161014
  2. MINIRINMELT [Suspect]
     Active Substance: DESMOPRESSIN ACETATE
     Indication: DIABETES INSIPIDUS
     Dosage: UNK
     Route: 048
  3. DESMOPRESSIN KYOWA [Suspect]
     Active Substance: DESMOPRESSIN
     Dosage: UNK
     Route: 045
     Dates: start: 2015
  4. MINIRINMELT [Suspect]
     Active Substance: DESMOPRESSIN ACETATE
     Dosage: 60 ?G, UNK
     Route: 048
     Dates: start: 2014, end: 201512
  5. ROHYPNOL [Concomitant]
     Active Substance: FLUNITRAZEPAM
     Indication: INSOMNIA
     Route: 048
  6. DESMOPRESSIN KYOWA [Suspect]
     Active Substance: DESMOPRESSIN
     Indication: DIABETES INSIPIDUS
     Dosage: 10 ?G, UNK
     Route: 045

REACTIONS (29)
  - Dyspnoea [Recovered/Resolved]
  - Urticaria [Unknown]
  - Affect lability [Not Recovered/Not Resolved]
  - Blood pressure increased [Unknown]
  - Photophobia [Unknown]
  - Constipation [Unknown]
  - Presyncope [Unknown]
  - Pruritus generalised [Recovered/Resolved]
  - Vomiting [Unknown]
  - Mental disorder [Unknown]
  - White blood cell count increased [Unknown]
  - Oral discomfort [Recovered/Resolved]
  - Hyponatraemia [Recovered/Resolved]
  - Visual acuity reduced [Recovered/Resolved]
  - Hyperacusis [Recovered/Resolved]
  - Therapeutic product effect variable [Not Recovered/Not Resolved]
  - Speech disorder [Unknown]
  - Nausea [Unknown]
  - Glycosylated haemoglobin increased [Unknown]
  - Insomnia [Not Recovered/Not Resolved]
  - Face oedema [Unknown]
  - Loss of consciousness [Unknown]
  - Toothache [Unknown]
  - Blood glucose increased [Unknown]
  - Lethargy [Unknown]
  - Water intoxication [Not Recovered/Not Resolved]
  - Rash [Recovered/Resolved]
  - Somnolence [Unknown]
  - Salivary hypersecretion [Recovered/Resolved]

NARRATIVE: CASE EVENT DATE: 2015
